FAERS Safety Report 8555754 (Version 3)
Quarter: 2014Q4

REPORT INFORMATION
  Report Type: Report from Study
  Country: AU (occurrence: AU)
  Receive Date: 20120510
  Receipt Date: 20141229
  Transmission Date: 20150529
  Serious: Yes (Other)
  Sender: FDA-Public Use
  Company Number: AU-ROCHE-1066978

PATIENT
  Sex: Female

DRUGS (1)
  1. ACTEMRA [Suspect]
     Active Substance: TOCILIZUMAB
     Indication: RHEUMATOID ARTHRITIS
     Dosage: VOLUME OF INFUSION GIVEN 40ML?NEXT INFUSION : 19/JUL/2012
     Route: 042
     Dates: start: 20110818

REACTIONS (2)
  - Herpes zoster [Recovered/Resolved]
  - Malaise [Recovered/Resolved]
